FAERS Safety Report 5225990-9 (Version None)
Quarter: 2007Q1

REPORT INFORMATION
  Report Type: 
  Country: None (occurrence: None)
  Receive Date: 20070201
  Receipt Date: 20070126
  Transmission Date: 20070707
  Serious: Yes (Hospitalization, Disabling)
  Sender: FDA-Public Use
  Company Number: JP-BRACCO-BRO-010918

PATIENT
  Sex: Female

DRUGS (3)
  1. IOPAMIRON [Suspect]
     Route: 042
     Dates: start: 20061025, end: 20061025
  2. LIPITOR                            /01326101/ [Concomitant]
     Route: 050
     Dates: start: 20031201
  3. NORVASC                            /00972402/ [Concomitant]
     Route: 050
     Dates: start: 20031201

REACTIONS (3)
  - ANGLE CLOSURE GLAUCOMA [None]
  - HEADACHE [None]
  - WHITE BLOOD CELL COUNT INCREASED [None]
